FAERS Safety Report 10686038 (Version 2)
Quarter: 2014Q4

REPORT INFORMATION
  Report Type: Report from Study
  Country: AR (occurrence: AR)
  Receive Date: 20141231
  Receipt Date: 20141231
  Transmission Date: 20150529
  Serious: Yes (Other)
  Sender: FDA-Public Use
  Company Number: PHHY2014AR158063

PATIENT
  Age: 85 Year
  Sex: Female

DRUGS (2)
  1. EXFORGE [Suspect]
     Active Substance: AMLODIPINE BESYLATE\VALSARTAN
     Indication: HYPERTENSION
     Dosage: 1 DF (160/5, UNITS NOT REPORTED), QD
     Route: 048
     Dates: start: 2013
  2. EXFORGE [Suspect]
     Active Substance: AMLODIPINE BESYLATE\VALSARTAN
     Dosage: 0.5 DF (160/5 UNITS NOT REPORTED)
     Route: 048
     Dates: start: 201411

REACTIONS (5)
  - Fall [Recovering/Resolving]
  - Malaise [Recovering/Resolving]
  - Hypotension [Recovered/Resolved]
  - Syncope [Recovering/Resolving]
  - Wrong technique in drug usage process [Unknown]

NARRATIVE: CASE EVENT DATE: 201411
